FAERS Safety Report 24884468 (Version 1)
Quarter: 2025Q1

REPORT INFORMATION
  Report Type: Spontaneous
  Country: RO (occurrence: RO)
  Receive Date: 20250124
  Receipt Date: 20250124
  Transmission Date: 20250408
  Serious: Yes (Other)
  Sender: TEVA
  Company Number: RO-TEVA-VS-3289397

PATIENT
  Age: 6 Year
  Sex: Female

DRUGS (4)
  1. RISPERIDONE [Suspect]
     Active Substance: RISPERIDONE
     Indication: Product used for unknown indication
     Dosage: DOSAGE FORM: UNSPECIFIED
     Route: 048
  2. CONCERTA [Suspect]
     Active Substance: METHYLPHENIDATE HYDROCHLORIDE
     Indication: Attention deficit hyperactivity disorder
     Dosage: CONCERTA XL
     Route: 048
     Dates: start: 20101002, end: 20101103
  3. PYRITINOL [Concomitant]
     Indication: Product used for unknown indication
     Dosage: DOSAGE FORM: UNSPECIFIED
     Route: 048
  4. BLOOD, BOVINE [Concomitant]
     Active Substance: BLOOD, BOVINE
     Indication: Product used for unknown indication
     Dosage: DOSAGE FORM: UNSPECIFIED
     Route: 048

REACTIONS (1)
  - Choreoathetosis [Recovered/Resolved]

NARRATIVE: CASE EVENT DATE: 20101103
